FAERS Safety Report 6369983-7 (Version None)
Quarter: 2009Q3

REPORT INFORMATION
  Report Type: 
  Country: None (occurrence: None)
  Receive Date: 20090923
  Receipt Date: 20070606
  Transmission Date: 20100115
  Serious: Yes (Hospitalization)
  Sender: FDA-Public Use
  Company Number: US-ASTRAZENECA-2006UW07779

PATIENT
  Age: 16189 Day
  Sex: Female
  Weight: 90.7 kg

DRUGS (16)
  1. SEROQUEL [Suspect]
     Indication: SCHIZOPHRENIA
     Route: 048
     Dates: start: 20040601, end: 20060901
  2. SEROQUEL [Suspect]
     Indication: DEPRESSION
     Route: 048
     Dates: start: 20040601, end: 20060901
  3. SEROQUEL [Suspect]
     Dosage: 25 MG - 400 MG
     Route: 048
     Dates: start: 20040617
  4. SEROQUEL [Suspect]
     Dosage: 25 MG - 400 MG
     Route: 048
     Dates: start: 20040617
  5. GEODON [Concomitant]
     Dates: start: 20060101
  6. SOLIAN [Concomitant]
  7. STELAZINE [Concomitant]
     Dates: start: 20060101
  8. LEXAPRO [Concomitant]
     Dates: start: 20060101
  9. CRACK [Concomitant]
     Dates: start: 20000101
  10. ZOLOFT [Concomitant]
  11. GLUCOPHAGE [Concomitant]
  12. ACCUPRIL [Concomitant]
  13. CELEBREX [Concomitant]
  14. ATIVAN [Concomitant]
  15. HYDROCHLOROTHIAZIDE [Concomitant]
  16. LISINOPRIL [Concomitant]

REACTIONS (2)
  - INSULIN-REQUIRING TYPE 2 DIABETES MELLITUS [None]
  - TYPE 2 DIABETES MELLITUS [None]
